FAERS Safety Report 8249778-X (Version None)
Quarter: 2012Q2

REPORT INFORMATION
  Report Type: 
  Country: None (occurrence: None)
  Receive Date: 20120402
  Receipt Date: 20120321
  Transmission Date: 20120825
  Serious: Yes (Other)
  Sender: FDA-Public Use
  Company Number: PHHY2012CA016849

PATIENT
  Sex: Male

DRUGS (2)
  1. SANDOSTATIN LAR [Suspect]
     Dosage: 10 MG, ONCEA MONTH
     Route: 030
     Dates: start: 20100127
  2. SANDOSTATIN LAR [Suspect]
     Indication: CARCINOID TUMOUR
     Dosage: 10 MG, ONCEA MONTH
     Route: 030
     Dates: start: 20100127

REACTIONS (4)
  - HAEMATOMA [None]
  - BLOOD PRESSURE SYSTOLIC INCREASED [None]
  - WOUND HAEMORRHAGE [None]
  - WOUND [None]
